FAERS Safety Report 20171237 (Version 1)
Quarter: 2021Q4

REPORT INFORMATION
  Report Type: Report from Study
  Country: PA (occurrence: PA)
  Receive Date: 20211210
  Receipt Date: 20211210
  Transmission Date: 20220303
  Serious: Yes (Other)
  Sender: FDA-Public Use
  Company Number: PA-002147023-NVSC2021PA277573

PATIENT

DRUGS (1)
  1. RUXOLITINIB [Suspect]
     Active Substance: RUXOLITINIB
     Indication: Myelofibrosis
     Dosage: 30 MG, BID
     Route: 048

REACTIONS (3)
  - Gait disturbance [Unknown]
  - Malaise [Unknown]
  - Renal disorder [Unknown]
